FAERS Safety Report 6872726-1 (Version None)
Quarter: 2010Q3

REPORT INFORMATION
  Report Type: 
  Country: None (occurrence: None)
  Receive Date: 20100723
  Receipt Date: 20081028
  Transmission Date: 20110219
  Serious: No
  Sender: FDA-Public Use
  Company Number: US-PFIZER INC-2008091714

PATIENT
  Sex: Female
  Weight: 77.3 kg

DRUGS (10)
  1. CHANTIX [Suspect]
     Indication: SMOKING CESSATION THERAPY
     Dates: start: 20080301
  2. ZOLOFT [Concomitant]
  3. BUSPAR [Concomitant]
  4. FLEXERIL [Concomitant]
  5. NEXIUM [Concomitant]
  6. VALIUM [Concomitant]
     Indication: SLEEP DISORDER
  7. NORCO [Concomitant]
     Indication: PAIN
     Dosage: 10/325 MG
  8. MORPHINE [Concomitant]
  9. ATACAND [Concomitant]
     Indication: HYPERTENSION
     Dosage: 16/12.5
  10. ELAVIL [Concomitant]

REACTIONS (1)
  - ALOPECIA [None]
